FAERS Safety Report 8608270 (Version 2)
Quarter: 2012Q4

REPORT INFORMATION
  Report Type: 
  Country: ES (occurrence: ES)
  Receive Date: 20120611
  Receipt Date: 20121012
  Transmission Date: 20130627
  Serious: Yes (Other)
  Sender: FDA-Public Use
  Company Number: PHHY2012ES049205

PATIENT
  Age: 70 Year
  Sex: Male

DRUGS (1)
  1. TASIGNA [Suspect]

REACTIONS (1)
  - Acute myocardial infarction [Unknown]
